FAERS Safety Report 5525746-3 (Version None)
Quarter: 2007Q4

REPORT INFORMATION
  Report Type: 
  Country: None (occurrence: None)
  Receive Date: 20071120
  Receipt Date: 20071106
  Transmission Date: 20080405
  Serious: Yes (Hospitalization)
  Sender: FDA-Public Use
  Company Number: 2007SP003768

PATIENT
  Age: 76 Year
  Sex: Male
  Weight: 88.905 kg

DRUGS (8)
  1. BROVANA [Suspect]
     Indication: CHRONIC OBSTRUCTIVE PULMONARY DISEASE
     Dosage: 15 UG/2ML; INHALATION
     Route: 055
     Dates: start: 20071015, end: 20070101
  2. XOPENEX [Suspect]
     Dosage: INHALATION
     Route: 055
  3. SYNTHROID [Concomitant]
  4. SINGULAIR [Concomitant]
  5. MOBIC [Concomitant]
  6. CYMBALATA [Concomitant]
  7. SINGULAIR [Concomitant]
  8. ADVAIR DISKUS 100/50 [Concomitant]

REACTIONS (3)
  - CORONARY ARTERY DISEASE [None]
  - CORONARY ARTERY OCCLUSION [None]
  - MYOCARDIAL INFARCTION [None]
